FAERS Safety Report 4588706-5 (Version None)
Quarter: 2005Q1

REPORT INFORMATION
  Report Type: 
  Country: None (occurrence: None)
  Receive Date: 20050222
  Receipt Date: 20040922
  Transmission Date: 20050727
  Serious: Yes (Hospitalization)
  Sender: FDA-Public Use
  Company Number: PHEH2004US10217

PATIENT
  Age: 83 Year
  Sex: Female
  Weight: 89 kg

DRUGS (10)
  1. CALCIUM WITH VITAMIN D [Concomitant]
  2. FUROSEMIDE [Concomitant]
  3. PRILOSEC [Concomitant]
  4. NYSTATIN [Concomitant]
  5. CLONIDINE HCL [Concomitant]
  6. ALBUTEROL [Concomitant]
  7. MACROBID [Concomitant]
  8. CARDURA [Concomitant]
  9. VITAMIN B-12 [Concomitant]
  10. MIACALCIN [Suspect]
     Indication: OSTEOPOROSIS
     Dosage: 200 IU, QD
     Route: 045
     Dates: start: 20040801, end: 20040901

REACTIONS (3)
  - BLOOD PRESSURE INCREASED [None]
  - FLANK PAIN [None]
  - HYPOAESTHESIA [None]
